FAERS Safety Report 8791612 (Version 2)
Quarter: 2012Q4

REPORT INFORMATION
  Report Type: 
  Country: US (occurrence: US)
  Receive Date: 20120918
  Receipt Date: 20121009
  Transmission Date: 20130627
  Serious: Yes (Other)
  Sender: FDA-Public Use
  Company Number: US-PFIZER INC-2012225796

PATIENT
  Age: 61 Year
  Sex: Female
  Weight: 81.63 kg

DRUGS (6)
  1. TOVIAZ [Suspect]
     Indication: MICTURITION URGENCY
     Dosage: 4 mg daily
     Route: 048
     Dates: start: 20120810, end: 20120912
  2. TOVIAZ [Suspect]
     Indication: POLLAKIURIA
  3. TOVIAZ [Suspect]
     Indication: BLADDER SPASM
  4. CALTRATE [Concomitant]
     Indication: SUPPLEMENTATION THERAPY
     Dosage: one tablet, 2x/day
  5. MULTIVITAMINS [Concomitant]
     Indication: SUPPLEMENTATION THERAPY
     Dosage: one tablet , daily
  6. ARTHROTEC [Concomitant]
     Indication: ARTHRALGIA
     Dosage: 50 mg, 1x/day

REACTIONS (10)
  - Depressed level of consciousness [Recovered/Resolved]
  - Lethargy [Recovered/Resolved]
  - Depressed mood [Recovered/Resolved]
  - Feeling abnormal [Recovered/Resolved]
  - Restlessness [Recovered/Resolved]
  - Fatigue [Recovered/Resolved]
  - Pain [Recovered/Resolved]
  - Oesophagitis [Recovered/Resolved]
  - Drug ineffective [Not Recovered/Not Resolved]
  - Musculoskeletal stiffness [Recovered/Resolved]
